FAERS Safety Report 11770737 (Version 4)
Quarter: 2016Q3

REPORT INFORMATION
  Report Type: Report from Study
  Country: CA (occurrence: CA)
  Receive Date: 20151123
  Receipt Date: 20160701
  Transmission Date: 20161109
  Serious: Yes (Hospitalization, Other)
  Sender: FDA-Public Use
  Company Number: CA-VALIDUS PHARMACEUTICALS LLC-CA-2015VAL000731

PATIENT

DRUGS (7)
  1. METOPROLOL TARTRATE. [Suspect]
     Active Substance: METOPROLOL TARTRATE
     Indication: PRODUCT USED FOR UNKNOWN INDICATION
     Dosage: 50 MG, BID
     Route: 048
  2. METFORMIN [Concomitant]
     Active Substance: METFORMIN HYDROCHLORIDE
     Indication: PRODUCT USED FOR UNKNOWN INDICATION
     Dosage: UNK
  3. GLICLAZIDE [Concomitant]
     Active Substance: GLICLAZIDE
     Indication: PRODUCT USED FOR UNKNOWN INDICATION
     Dosage: UNK
  4. SANDOSTATIN LAR DEPOT [Suspect]
     Active Substance: OCTREOTIDE ACETATE
     Indication: CARCINOID TUMOUR OF THE SMALL BOWEL
     Dosage: 60 MG, EVERY 4 WEEKS
     Route: 030
     Dates: start: 20060530
  5. HYDROCHLOROTHIAZIDE. [Concomitant]
     Active Substance: HYDROCHLOROTHIAZIDE
     Indication: PRODUCT USED FOR UNKNOWN INDICATION
     Dosage: UNK
  6. BETAHISTINE [Concomitant]
     Active Substance: BETAHISTINE
     Indication: PRODUCT USED FOR UNKNOWN INDICATION
     Dosage: 12 MG, PRN
  7. NAPROSYN [Concomitant]
     Active Substance: NAPROXEN
     Indication: PRODUCT USED FOR UNKNOWN INDICATION
     Dosage: UNK

REACTIONS (42)
  - Vertigo [Unknown]
  - Myalgia [Unknown]
  - Hepatic pain [Recovering/Resolving]
  - Muscle tightness [Unknown]
  - Groin pain [Unknown]
  - Pain in extremity [Unknown]
  - Back pain [Recovering/Resolving]
  - Abdominal pain [Recovering/Resolving]
  - Paraesthesia [Unknown]
  - Diabetes mellitus [Unknown]
  - Muscle spasms [Unknown]
  - Contusion [Recovered/Resolved]
  - Dizziness [Unknown]
  - Abdominal tenderness [Not Recovered/Not Resolved]
  - Renal impairment [Recovered/Resolved]
  - Neuralgia [Unknown]
  - Arthralgia [Unknown]
  - Nausea [Recovered/Resolved]
  - Rash papular [Unknown]
  - Urinary tract infection [Unknown]
  - Serum serotonin increased [Unknown]
  - Urine output decreased [Unknown]
  - Injection site erythema [Unknown]
  - Fatigue [Not Recovered/Not Resolved]
  - Blood pressure systolic increased [Unknown]
  - Haemoglobin decreased [Recovering/Resolving]
  - Blood pressure increased [Unknown]
  - Cholelithiasis [Unknown]
  - Injection site pain [Unknown]
  - Injection site reaction [Unknown]
  - Nasopharyngitis [Not Recovered/Not Resolved]
  - Hypoaesthesia [Unknown]
  - Vomiting [Unknown]
  - Diarrhoea [Recovered/Resolved]
  - Cellulitis [Unknown]
  - Pain [Recovering/Resolving]
  - Subcutaneous haematoma [Recovering/Resolving]
  - Injection site mass [Unknown]
  - Malaise [Unknown]
  - White blood cell count increased [Recovered/Resolved]
  - Malignant neoplasm progression [Unknown]
  - Peripheral swelling [Recovering/Resolving]

NARRATIVE: CASE EVENT DATE: 2006
